FAERS Safety Report 19695318 (Version 2)
Quarter: 2021Q3

REPORT INFORMATION
  Report Type: Report from Study
  Country: FR (occurrence: FR)
  Receive Date: 20210812
  Receipt Date: 20210909
  Transmission Date: 20211014
  Serious: Yes (Hospitalization)
  Sender: FDA-Public Use
  Company Number: FR-JNJFOC-20210808975

PATIENT
  Age: 75 Year
  Sex: Male
  Weight: 99 kg

DRUGS (17)
  1. AMIVANTAMAB. [Suspect]
     Active Substance: AMIVANTAMAB
     Indication: NON-SMALL CELL LUNG CANCER
     Route: 058
     Dates: start: 20210622, end: 20210720
  2. ERYTHROGEL [Concomitant]
     Indication: RASH
     Dosage: 1
     Route: 062
     Dates: start: 20210706, end: 20210720
  3. AERIUS [EBASTINE] [Concomitant]
     Active Substance: EBASTINE
     Indication: PRURITUS
     Route: 048
     Dates: start: 20210706
  4. AMIVANTAMAB. [Suspect]
     Active Substance: AMIVANTAMAB
     Indication: NON-SMALL CELL LUNG CANCER
     Route: 042
     Dates: start: 20210622, end: 20210720
  5. LAZERTINIB. [Suspect]
     Active Substance: LAZERTINIB
     Indication: NON-SMALL CELL LUNG CANCER
     Route: 048
     Dates: start: 20210622
  6. LERCANIDIPINE CHLORHYDRATE [Concomitant]
     Active Substance: LERCANIDIPINE HYDROCHLORIDE
     Indication: ATRIAL FIBRILLATION
     Route: 048
     Dates: start: 20180101
  7. BISOPROLOL FUMARATE. [Concomitant]
     Active Substance: BISOPROLOL FUMARATE
     Indication: HYPERTENSION
     Route: 048
     Dates: start: 20180101
  8. DEXERYL [GLYCEROL;PARAFFIN, LIQUID;WHITE SOFT PARAFFIN] [Concomitant]
     Active Substance: GLYCERIN\MINERAL OIL\PETROLATUM
     Indication: RASH
     Dosage: 1
     Route: 062
     Dates: start: 20210706
  9. HYDROCHLOROTHIAZIDE. [Concomitant]
     Active Substance: HYDROCHLOROTHIAZIDE
     Indication: HYPERTENSION
     Route: 048
     Dates: start: 20180101
  10. RIVAROXABAN [Concomitant]
     Active Substance: RIVAROXABAN
     Indication: ATRIAL FIBRILLATION
     Route: 048
     Dates: start: 20180101
  11. LOSARTAN POTASSIQUE [Concomitant]
     Active Substance: LOSARTAN POTASSIUM
     Indication: HYPERTENSION
     Route: 048
     Dates: start: 20180101
  12. ESOMEPRAZOLE. [Concomitant]
     Active Substance: ESOMEPRAZOLE MAGNESIUM
     Indication: GASTROINTESTINAL DISORDER THERAPY
     Route: 048
  13. DOXYCYCLINE. [Concomitant]
     Active Substance: DOXYCYCLINE
     Route: 048
     Dates: start: 20210720
  14. DOXYCYCLINE. [Concomitant]
     Active Substance: DOXYCYCLINE
     Indication: RASH
     Route: 048
     Dates: start: 20210706
  15. LAZERTINIB. [Suspect]
     Active Substance: LAZERTINIB
     Indication: NON-SMALL CELL LUNG CANCER
     Route: 048
     Dates: start: 20210622
  16. XYZALL [Concomitant]
     Active Substance: LEVOCETIRIZINE DIHYDROCHLORIDE
     Indication: RASH
     Route: 048
     Dates: start: 20210706
  17. NERISONE [Concomitant]
     Active Substance: DIFLUCORTOLONE VALERATE
     Indication: RASH
     Dosage: 1
     Route: 062
     Dates: start: 20210720

REACTIONS (1)
  - Oedema peripheral [Recovered/Resolved]

NARRATIVE: CASE EVENT DATE: 20210803
